FAERS Safety Report 10178401 (Version 2)
Quarter: 2014Q2

REPORT INFORMATION
  Report Type: Spontaneous
  Country: GR (occurrence: GR)
  Receive Date: 20140519
  Receipt Date: 20140519
  Transmission Date: 20141212
  Serious: Yes (Hospitalization)
  Sender: FDA-Public Use
  Company Number: GR-ACCORD-023615

PATIENT
  Age: 36 Year
  Sex: Female

DRUGS (1)
  1. TOPIRAMATE [Suspect]
     Indication: MIGRAINE
     Dosage: PATIENT HAD BEEN INSTRUCTED TO INCREASE THE DOSE EVERY TWO WEEKS UP TO A LIMIT OF 100MG/DAY

REACTIONS (3)
  - Angle closure glaucoma [Recovering/Resolving]
  - Vomiting [Recovering/Resolving]
  - Iridocyclitis [Recovering/Resolving]
